FAERS Safety Report 6700828-9 (Version None)
Quarter: 2010Q2

REPORT INFORMATION
  Report Type: 
  Country: None (occurrence: None)
  Receive Date: 20100428
  Receipt Date: 20100412
  Transmission Date: 20101027
  Serious: Yes (Other)
  Sender: FDA-Public Use
  Company Number: ZA-SANOFI-AVENTIS-2010SA004793

PATIENT

DRUGS (2)
  1. SOLOSTAR [Suspect]
  2. APIDRA [Suspect]

REACTIONS (1)
  - DEVICE MALFUNCTION [None]
